FAERS Safety Report 7693896-1 (Version None)
Quarter: 2011Q3

REPORT INFORMATION
  Report Type: 
  Country: None (occurrence: None)
  Receive Date: 20110819
  Receipt Date: 20110811
  Transmission Date: 20111222
  Serious: Yes (Other)
  Sender: FDA-Public Use
  Company Number: US-AMGEN-USASP2011040852

PATIENT
  Age: 2 Year
  Sex: Male

DRUGS (1)
  1. ENBREL [Suspect]
     Dosage: 50 MG, QWK
     Route: 064
     Dates: start: 20060901, end: 20061101

REACTIONS (3)
  - AUTISM [None]
  - SENSORY DISTURBANCE [None]
  - APRAXIA [None]
